FAERS Safety Report 18005801 (Version 1)
Quarter: 2020Q3

REPORT INFORMATION
  Report Type: Spontaneous
  Country: US (occurrence: US)
  Receive Date: 20200709
  Receipt Date: 20200709
  Transmission Date: 20201103
  Serious: Yes (Hospitalization)
  Sender: FDA-Public Use
  Company Number: None

PATIENT
  Age: 83 Year
  Sex: Male
  Weight: 88.65 kg

DRUGS (18)
  1. GLIMEPIRIDE. [Concomitant]
     Active Substance: GLIMEPIRIDE
  2. MULTIVITAMINS [Concomitant]
     Active Substance: VITAMINS
  3. REVLIMID [Concomitant]
     Active Substance: LENALIDOMIDE
  4. PANTOPRAZOLE [Concomitant]
     Active Substance: PANTOPRAZOLE
  5. PROCRIT [Concomitant]
     Active Substance: ERYTHROPOIETIN
  6. VITAMIN D [Concomitant]
     Active Substance: VITAMIN D NOS
  7. DEXAMETHASONE. [Concomitant]
     Active Substance: DEXAMETHASONE
  8. ONDANSETRON [Concomitant]
     Active Substance: ONDANSETRON
  9. ASPIRIN. [Concomitant]
     Active Substance: ASPIRIN
  10. FINASTERIDE. [Concomitant]
     Active Substance: FINASTERIDE
  11. ATORVASTATIN [Concomitant]
     Active Substance: ATORVASTATIN
  12. LANTUS [Concomitant]
     Active Substance: INSULIN GLARGINE
  13. PREDNISONE. [Concomitant]
     Active Substance: PREDNISONE
  14. NINLARO [Suspect]
     Active Substance: IXAZOMIB CITRATE
     Indication: PLASMA CELL MYELOMA
     Dosage: ?          OTHER FREQUENCY:ONCE WEEKLY;?
     Route: 048
     Dates: start: 20200417
  15. ACYCLOVIR. [Concomitant]
     Active Substance: ACYCLOVIR
  16. TAMSULOSIN [Concomitant]
     Active Substance: TAMSULOSIN
  17. FERROUS SULFATE. [Concomitant]
     Active Substance: FERROUS SULFATE
  18. PROCHLORPERAZINE. [Concomitant]
     Active Substance: PROCHLORPERAZINE

REACTIONS (1)
  - Hospitalisation [None]
